FAERS Safety Report 4802219-4 (Version None)
Quarter: 2005Q4

REPORT INFORMATION
  Report Type: 
  Country: None (occurrence: None)
  Receive Date: 20051017
  Receipt Date: 20051017
  Transmission Date: 20060501
  Serious: Yes (Life-Threatening, Hospitalization, Disabling)
  Sender: FDA-Public Use
  Company Number: None

PATIENT
  Age: 50 Year
  Sex: Male
  Weight: 113.3993 kg

DRUGS (6)
  1. PEGASYS [Suspect]
     Indication: HEPATITIS C
     Dosage: 180 MCG Q WEEK SQ
     Route: 058
     Dates: start: 20040408, end: 20040920
  2. COPEGUS [Suspect]
     Indication: HEPATITIS C
     Dosage: 1000 MCG Q DAY PO
     Route: 048
     Dates: start: 20040408, end: 20040920
  3. COREG [Concomitant]
  4. DIGOXIN [Concomitant]
  5. WARFARIN [Concomitant]
  6. AMIODARONE HCL [Concomitant]

REACTIONS (4)
  - ADRENAL MASS [None]
  - ATRIAL FIBRILLATION [None]
  - COLON NEOPLASM [None]
  - PITUITARY TUMOUR [None]
